FAERS Safety Report 21815519 (Version 1)
Quarter: 2023Q1

REPORT INFORMATION
  Report Type: Spontaneous
  Country: US (occurrence: US)
  Receive Date: 20230104
  Receipt Date: 20230104
  Transmission Date: 20230418
  Serious: No
  Sender: FDA-Public Use
  Company Number: US-STRIDES ARCOLAB LIMITED-2022SP002875

PATIENT
  Age: 41 Year
  Sex: Female

DRUGS (2)
  1. METHOTREXATE [Suspect]
     Active Substance: METHOTREXATE
     Indication: Pityriasis lichenoides et varioliformis acuta
     Dosage: UNK (MAXIMUM WEEKLY DOSE OF 7.5MG)
     Route: 048
  2. DOXYCYCLINE [Suspect]
     Active Substance: DOXYCYCLINE
     Indication: Pityriasis lichenoides et varioliformis acuta
     Dosage: UNK
     Route: 065

REACTIONS (2)
  - Nausea [Unknown]
  - Off label use [Unknown]
